FAERS Safety Report 7128144-4 (Version None)
Quarter: 2010Q4

REPORT INFORMATION
  Report Type: 
  Country: None (occurrence: None)
  Receive Date: 20101130
  Receipt Date: 20101115
  Transmission Date: 20110411
  Serious: Yes (Other)
  Sender: FDA-Public Use
  Company Number: US-ASTRAZENECA-2010SE54388

PATIENT
  Age: 82 Year
  Sex: Female
  Weight: 63.5 kg

DRUGS (7)
  1. SYMBICORT [Suspect]
     Indication: ASTHMA
     Dosage: TOTAL DAILY DOSE: 640 MCG
     Route: 055
     Dates: start: 20060101
  2. NEXIUM [Concomitant]
     Route: 048
     Dates: start: 20080101
  3. CARDIAZEM [Concomitant]
  4. POTASSIUM CHLORIDE [Concomitant]
  5. CHLORTHIAZIDE TAB [Concomitant]
  6. SINGULAIR [Concomitant]
  7. WARFARIN SODIUM [Concomitant]

REACTIONS (2)
  - COLON CANCER [None]
  - DEAFNESS [None]
